FAERS Safety Report 10381192 (Version 1)
Quarter: 2014Q3

REPORT INFORMATION
  Report Type: Spontaneous
  Country: US (occurrence: US)
  Receive Date: 20140813
  Receipt Date: 20140813
  Transmission Date: 20150326
  Serious: Yes (Other)
  Sender: FDA-Public Use
  Company Number: US-TARO-2014TAR00214

PATIENT
  Sex: Male
  Weight: 85.26 kg

DRUGS (7)
  1. CARBIDOPA/LEVODOPA 25/100MG ER MYL0088 [Concomitant]
     Dosage: 1 TABLETS, 1X/DAY
  2. CARBIDOPA/LEVODOPA 25/100MG TIVA [Concomitant]
     Dosage: 1 TABLETS, 4X/DAY
  3. AMITRIPTYLINE [Concomitant]
     Active Substance: AMITRIPTYLINE
     Dosage: 5 MG, 1X/DAY
  4. WARFARIN SODIUM TABLETS USP 5MG [Suspect]
     Active Substance: WARFARIN SODIUM
     Indication: CEREBROVASCULAR ACCIDENT
     Dosage: 5 MG, 5X/WEEK
     Route: 048
     Dates: start: 2010
  5. WARFARIN SODIUM TABLETS USP 5MG [Suspect]
     Active Substance: WARFARIN SODIUM
     Dosage: 7.5 MG, 2X/WEEK
     Route: 048
     Dates: start: 2010
  6. ROPINIROLE GLEN 0025 [Concomitant]
     Indication: PARKINSON^S DISEASE
     Dosage: 1 MG, 3X/DAY
  7. METOPROLOL [Concomitant]
     Active Substance: METOPROLOL
     Dosage: 12.5 MG, 2X/DAY

REACTIONS (4)
  - Spinal cord compression [Unknown]
  - Kyphosis [Not Recovered/Not Resolved]
  - Nerve compression [Unknown]
  - Back pain [Not Recovered/Not Resolved]
